FAERS Safety Report 14834451 (Version 1)
Quarter: 2018Q2

REPORT INFORMATION
  Report Type: Spontaneous
  Country: US (occurrence: US)
  Receive Date: 20180412
  Receipt Date: 20180412
  Transmission Date: 20180711
  Serious: Yes (Other)
  Sender: FDA-Public Use
  Company Number: None

PATIENT
  Age: 52 Year
  Sex: Male
  Weight: 146.25 kg

DRUGS (7)
  1. IC MELOXICAM 15 MG / SUBSTITUTE FOR MOBIC [Suspect]
     Active Substance: MELOXICAM
     Indication: ARTHRITIS
     Dosage: ?          QUANTITY:1 TABLET(S);?
     Route: 048
     Dates: start: 20180410
  2. IC MELOXICAM 15 MG / SUBSTITUTE FOR MOBIC [Suspect]
     Active Substance: MELOXICAM
     Indication: ARTHRALGIA
     Dosage: ?          QUANTITY:1 TABLET(S);?
     Route: 048
     Dates: start: 20180410
  3. LOW DOSE ASPIRIN [Concomitant]
     Active Substance: ASPIRIN
  4. BENICAR HTC [Concomitant]
  5. METOPROLOL SUCC ER [Concomitant]
     Active Substance: METOPROLOL SUCCINATE
  6. GLUCOSAMINE CONDROITIN TRIPLE STRENGTH [Concomitant]
  7. MELATONIN [Concomitant]
     Active Substance: MELATONIN

REACTIONS (1)
  - Erection increased [None]

NARRATIVE: CASE EVENT DATE: 20180412
